FAERS Safety Report 8082185-1 (Version None)
Quarter: 2012Q1

REPORT INFORMATION
  Report Type: 
  Country: None (occurrence: None)
  Receive Date: 20120127
  Receipt Date: 20110204
  Transmission Date: 20120608
  Serious: No
  Sender: FDA-Public Use
  Company Number: US-ABBOTT-11P-163-0701850-00

PATIENT
  Sex: Female
  Weight: 54.026 kg

DRUGS (3)
  1. METOPROLOL TARTRATE [Concomitant]
     Indication: HYPERTENSION
     Dosage: 1/2 TAB TWICE DAILY
     Route: 048
  2. HUMIRA [Suspect]
     Indication: OSTEOARTHRITIS
     Dates: start: 20110130
  3. HUMIRA [Suspect]
     Indication: RHEUMATOID ARTHRITIS
     Route: 058
     Dates: start: 20100701, end: 20110109

REACTIONS (2)
  - SINUSITIS [None]
  - URINARY TRACT INFECTION [None]
